FAERS Safety Report 9863968 (Version 3)
Quarter: 2014Q4

REPORT INFORMATION
  Report Type: Spontaneous
  Country: US (occurrence: US)
  Receive Date: 20140203
  Receipt Date: 20141002
  Transmission Date: 20150529
  Serious: Yes (Hospitalization, Other)
  Sender: FDA-Public Use
  Company Number: US-009507513-1402USA000629

PATIENT
  Sex: Female

DRUGS (1)
  1. NUVARING [Suspect]
     Active Substance: ETHINYL ESTRADIOL\ETONOGESTREL
     Indication: CONTRACEPTION
     Dosage: UNK
     Route: 067
     Dates: start: 201110, end: 20120113

REACTIONS (8)
  - Uterine dilation and curettage [Unknown]
  - Migraine [Unknown]
  - Intervertebral disc disorder [Unknown]
  - Ovarian haematoma [Unknown]
  - Cholecystectomy [Unknown]
  - Asthma [Unknown]
  - Deep vein thrombosis [Unknown]
  - Road traffic accident [Unknown]

NARRATIVE: CASE EVENT DATE: 20120110
